FAERS Safety Report 23139430 (Version 2)
Quarter: 2023Q4

REPORT INFORMATION
  Report Type: Spontaneous
  Country: US (occurrence: US)
  Receive Date: 20231102
  Receipt Date: 20231110
  Transmission Date: 20240110
  Serious: Yes (Death, Other)
  Sender: FDA-Public Use
  Company Number: US-SUN PHARMACEUTICAL INDUSTRIES LTD-2023R1-415589

PATIENT
  Sex: Female

DRUGS (6)
  1. OXCARBAZEPINE [Suspect]
     Active Substance: OXCARBAZEPINE
     Indication: Seizure
     Dosage: 18 MILLIGRAM, BID
     Route: 048
     Dates: start: 20200904
  2. OXCARBAZEPINE [Suspect]
     Active Substance: OXCARBAZEPINE
     Dosage: 36 MILLIGRAM, BID
     Route: 048
     Dates: start: 20200907
  3. OXCARBAZEPINE [Suspect]
     Active Substance: OXCARBAZEPINE
     Dosage: 50 MILLIGRAM, BID
     Route: 048
     Dates: start: 20200916
  4. OXCARBAZEPINE [Suspect]
     Active Substance: OXCARBAZEPINE
     Dosage: 60 MILLIGRAM, BID
     Route: 048
     Dates: start: 20200919
  5. OXCARBAZEPINE [Suspect]
     Active Substance: OXCARBAZEPINE
     Dosage: 30 MILLIGRAM, BID
     Route: 048
     Dates: start: 20201008
  6. OXCARBAZEPINE [Suspect]
     Active Substance: OXCARBAZEPINE
     Dosage: 78 MILLIGRAM, BID
     Route: 048
     Dates: start: 20201119

REACTIONS (1)
  - Therapy partial responder [Fatal]
